FAERS Safety Report 5567884-5 (Version None)
Quarter: 2007Q4

REPORT INFORMATION
  Report Type: 
  Country: None (occurrence: None)
  Receive Date: 20071218
  Receipt Date: 20071211
  Transmission Date: 20080405
  Serious: Yes (Death, Life-Threatening, Hospitalization)
  Sender: FDA-Public Use
  Company Number: TPA2007A01504

PATIENT
  Age: 77 Year
  Sex: Male

DRUGS (9)
  1. ACTOS [Suspect]
     Indication: HYPERGLYCAEMIA
     Dosage: 15 MG, 1 IN 1 D, PER ORAL
     Route: 048
     Dates: start: 20070621, end: 20070712
  2. ACTOS [Suspect]
     Indication: TYPE 2 DIABETES MELLITUS
     Dosage: 15 MG, 1 IN 1 D, PER ORAL
     Route: 048
     Dates: start: 20070621, end: 20070712
  3. METFORMIN (METFORMIN) [Concomitant]
  4. AMARYL [Concomitant]
  5. BENTYL [Concomitant]
  6. LISINOPRIL [Concomitant]
  7. PREVACID [Concomitant]
  8. LEXAPRO [Concomitant]
  9. LANTUS [Concomitant]

REACTIONS (2)
  - HEPATIC CANCER METASTATIC [None]
  - PANCREATIC CARCINOMA [None]
